FAERS Safety Report 4496544-7 (Version None)
Quarter: 2004Q4

REPORT INFORMATION
  Report Type: 
  Country: None (occurrence: None)
  Receive Date: 20041109
  Receipt Date: 20041102
  Transmission Date: 20050328
  Serious: Yes (Other)
  Sender: FDA-Public Use
  Company Number: ZA-BRISTOL-MYERS SQUIBB COMPANY-12752721

PATIENT
  Age: 81 Year

DRUGS (2)
  1. TEQUIN [Suspect]
  2. PANTOPRAZOLE SODIUM [Suspect]

REACTIONS (1)
  - HYPOGLYCAEMIA [None]
